FAERS Safety Report 13274964 (Version 1)
Quarter: 2017Q1

REPORT INFORMATION
  Report Type: Spontaneous
  Country: JP (occurrence: JP)
  Receive Date: 20170227
  Receipt Date: 20170227
  Transmission Date: 20170428
  Serious: Yes (Hospitalization)
  Sender: FDA-Public Use
  Company Number: JP-ELI_LILLY_AND_COMPANY-JP201702006861

PATIENT
  Age: 22 Year
  Sex: Female

DRUGS (5)
  1. ZYPREXA [Suspect]
     Active Substance: OLANZAPINE
     Dosage: 7.5 MG, QD
     Route: 048
  2. ALTI-CLONAZEPAM [Concomitant]
     Dosage: 0.5 MG, QD
  3. TRIHEXYPHENIDYL                    /00002602/ [Concomitant]
     Dosage: 6 MG, QD
  4. CM PROMETHAZINE [Concomitant]
     Dosage: 25 MG, QD
  5. ZYPREXA [Suspect]
     Active Substance: OLANZAPINE
     Indication: HALLUCINATION, AUDITORY
     Dosage: UNK
     Route: 048

REACTIONS (3)
  - Hallucination, auditory [Recovering/Resolving]
  - Extrapyramidal disorder [Recovering/Resolving]
  - Hypersomnia [Recovering/Resolving]
